FAERS Safety Report 9209332 (Version 1)
Quarter: 2013Q1

REPORT INFORMATION
  Report Type: Spontaneous
  Country: US (occurrence: None)
  Receive Date: 20120820
  Receipt Date: 20120820
  Transmission Date: 20140127
  Serious: No
  Sender: FDA-Public Use
  Company Number: 1000030292

PATIENT
  Age: 67 Year
  Sex: Female

DRUGS (6)
  1. VIIBRYD (VILAZODONE)(10 MILLIGRAM, TABLETS) [Suspect]
     Indication: DEPRESSION
     Route: 048
     Dates: start: 20120423, end: 20120429
  2. METHADONE (METHADONE) (METHADONE) [Concomitant]
  3. ARMOUR THYROID (THYROID) (THYROID) [Concomitant]
  4. ESTRADIOL (ESTRADIOL) (ESTRADIOL) [Concomitant]
  5. VITAMIN D (VITAMIN D) (VITAMIN D) [Concomitant]
  6. ESSENTIAL FATTY ACIDS (ESSENTIAL FATTY ACIDS) (ESSENTIAL FATTY ACIDS) [Concomitant]

REACTIONS (2)
  - Insomnia [None]
  - Diarrhoea [None]
